FAERS Safety Report 7581603-2 (Version None)
Quarter: 2011Q2

REPORT INFORMATION
  Report Type: 
  Country: None (occurrence: None)
  Receive Date: 20110629
  Receipt Date: 20110627
  Transmission Date: 20111010
  Serious: Yes (Life-Threatening, Hospitalization, Other)
  Sender: FDA-Public Use
  Company Number: PHFR2011GB03182

PATIENT
  Sex: Female

DRUGS (8)
  1. VALPROATE SODIUM [Concomitant]
     Dosage: UNK
     Route: 048
  2. PIOGLITAZONE [Concomitant]
     Dosage: 45 MG, QD
     Route: 048
  3. VENLAFAXINE [Concomitant]
     Dosage: 300 MG, UNK
     Route: 048
  4. SIMVASTATIN [Concomitant]
     Dosage: 40 MG, QD
     Route: 048
  5. METFORMIN HCL [Concomitant]
     Dosage: 850 MG, UNK
     Route: 048
  6. CLOZAPINE [Suspect]
     Indication: INTENTIONAL SELF-INJURY
     Dosage: 500 MG,
     Route: 048
     Dates: start: 20060525
  7. LANSOPRAZOLE [Concomitant]
     Dosage: 30 MG, QD
     Route: 048
  8. LITHIUM CARBONATE [Concomitant]
     Dosage: 600 MG, UNK

REACTIONS (3)
  - CHRONIC OBSTRUCTIVE PULMONARY DISEASE [None]
  - CONVULSION [None]
  - DIABETES MELLITUS [None]
